FAERS Safety Report 6681558-9 (Version None)
Quarter: 2010Q2

REPORT INFORMATION
  Report Type: 
  Country: None (occurrence: None)
  Receive Date: 20100414
  Receipt Date: 20100409
  Transmission Date: 20101027
  Serious: Yes (Death, Other)
  Sender: FDA-Public Use
  Company Number: PHHY2010BR22614

PATIENT
  Sex: Male

DRUGS (2)
  1. DIOVAN HCT [Suspect]
     Indication: HYPERTENSION
     Dosage: 1 TABLET (160/12.5 MG) DAILY
     Route: 048
     Dates: start: 20090901
  2. GALVUS MET [Suspect]
     Indication: TYPE 2 DIABETES MELLITUS
     Dosage: 2 TABLETS DAILY
     Route: 048
     Dates: start: 20090901

REACTIONS (1)
  - NEOPLASM MALIGNANT [None]
